FAERS Safety Report 13210939 (Version 1)
Quarter: 2017Q1

REPORT INFORMATION
  Report Type: Spontaneous
  Country: US (occurrence: US)
  Receive Date: 20170210
  Receipt Date: 20170210
  Transmission Date: 20170428
  Serious: No
  Sender: FDA-Public Use
  Company Number: None

PATIENT
  Age: 63 Year
  Sex: Male
  Weight: 134.5 kg

DRUGS (1)
  1. INTRON A [Suspect]
     Active Substance: INTERFERON ALFA-2B
     Dosage: 119MU
     Dates: end: 20130906

REACTIONS (5)
  - Pollakiuria [None]
  - Urine odour abnormal [None]
  - Burning sensation [None]
  - Micturition urgency [None]
  - Dysuria [None]

NARRATIVE: CASE EVENT DATE: 20131030
